FAERS Safety Report 7610628-3 (Version None)
Quarter: 2011Q3

REPORT INFORMATION
  Report Type: 
  Country: None (occurrence: None)
  Receive Date: 20110715
  Receipt Date: 20110705
  Transmission Date: 20111222
  Serious: Yes (Hospitalization, Other)
  Sender: FDA-Public Use
  Company Number: US-BAYER-201041317NA

PATIENT
  Age: 39 Year
  Sex: Female
  Weight: 90.703 kg

DRUGS (5)
  1. YAZ [Suspect]
     Indication: PREMENSTRUAL SYNDROME
     Dosage: UNK
     Route: 048
     Dates: start: 20090929, end: 20100109
  2. CYMBALTA [Concomitant]
  3. RAMIPRIL [Concomitant]
     Dosage: UNK
     Dates: start: 20100101
  4. CYMBALTA [Concomitant]
     Dosage: 60 MG, DAILY
  5. CRESTOR [Concomitant]
     Indication: BLOOD CHOLESTEROL INCREASED
     Dosage: 40 MG, UNK

REACTIONS (5)
  - MYOCARDIAL INFARCTION [None]
  - HEART INJURY [None]
  - CARDIAC DISORDER [None]
  - BIPOLAR I DISORDER [None]
  - DEPRESSION [None]
